FAERS Safety Report 6493988-9 (Version None)
Quarter: 2009Q4

REPORT INFORMATION
  Report Type: 
  Country: None (occurrence: None)
  Receive Date: 20091214
  Receipt Date: 20081204
  Transmission Date: 20100525
  Serious: No
  Sender: FDA-Public Use
  Company Number: US-BRISTOL-MYERS SQUIBB COMPANY-14431233

PATIENT
  Age: 8 Year
  Sex: Female

DRUGS (3)
  1. ABILIFY [Suspect]
     Indication: BIPOLAR DISORDER
     Dates: end: 20080101
  2. RITALIN [Concomitant]
     Dates: end: 20080101
  3. LITHIUM [Concomitant]

REACTIONS (1)
  - DYSKINESIA [None]
